FAERS Safety Report 5445462-6 (Version None)
Quarter: 2007Q3

REPORT INFORMATION
  Report Type: 
  Country: None (occurrence: None)
  Receive Date: 20070906
  Receipt Date: 20070904
  Transmission Date: 20080115
  Serious: Yes (Hospitalization, Other)
  Sender: FDA-Public Use
  Company Number: GB-ROXANE LABORATORIES, INC-2007-BP-20570RO

PATIENT
  Age: 76 Year
  Sex: Female

DRUGS (4)
  1. CALCIUM CARBONATE [Suspect]
     Indication: DYSPEPSIA
     Route: 048
  2. IBUPROFEN [Suspect]
     Indication: OSTEOARTHRITIS
  3. SALBUTAMOL [Suspect]
     Indication: CHRONIC OBSTRUCTIVE PULMONARY DISEASE
     Route: 055
  4. CALCIUM CHANNEL BLOCKER [Suspect]
     Indication: HYPERTENSION

REACTIONS (9)
  - CONSTIPATION [None]
  - DIARRHOEA [None]
  - DYSPEPSIA [None]
  - GASTRITIS EROSIVE [None]
  - HYPERCALCAEMIA [None]
  - MILK-ALKALI SYNDROME [None]
  - NOCTURIA [None]
  - POLYDIPSIA [None]
  - POLYURIA [None]
